FAERS Safety Report 16963720 (Version 1)
Quarter: 2019Q4

REPORT INFORMATION
  Report Type: Report from Study
  Country: None (occurrence: RO)
  Receive Date: 20191025
  Receipt Date: 20191025
  Transmission Date: 20200122
  Serious: Yes (Other)
  Sender: FDA-Public Use
  Company Number: RO-ABBVIE-19K-135-2977371-00

PATIENT
  Age: 30 Year
  Sex: Male

DRUGS (1)
  1. HUMIRA [Suspect]
     Active Substance: ADALIMUMAB
     Indication: ANKYLOSING SPONDYLITIS
     Route: 058
     Dates: start: 20140101, end: 2019

REACTIONS (1)
  - Mycobacterium tuberculosis complex test positive [Not Recovered/Not Resolved]

NARRATIVE: CASE EVENT DATE: 201910
